FAERS Safety Report 25512189 (Version 1)
Quarter: 2025Q3

REPORT INFORMATION
  Report Type: Spontaneous
  Country: CN (occurrence: CN)
  Receive Date: 20250703
  Receipt Date: 20250703
  Transmission Date: 20251021
  Serious: Yes (Other)
  Sender: SANDOZ
  Company Number: CN-002147023-NVSC2025CN104695

PATIENT
  Age: 9 Year
  Sex: Male
  Weight: 36 kg

DRUGS (3)
  1. TOBRADEX [Suspect]
     Active Substance: DEXAMETHASONE\TOBRAMYCIN
     Indication: Antifungal treatment
     Dosage: 0.100 ML, TID
     Route: 047
     Dates: start: 20250625, end: 20250625
  2. TOBRADEX [Suspect]
     Active Substance: DEXAMETHASONE\TOBRAMYCIN
     Indication: Anti-infective therapy
  3. TOBRADEX [Suspect]
     Active Substance: DEXAMETHASONE\TOBRAMYCIN
     Indication: Antiinflammatory therapy

REACTIONS (2)
  - Ocular hypertension [Recovering/Resolving]
  - Corneal oedema [Recovering/Resolving]

NARRATIVE: CASE EVENT DATE: 20250625
